FAERS Safety Report 10706341 (Version 2)
Quarter: 2016Q4

REPORT INFORMATION
  Report Type: Spontaneous
  Country: US (occurrence: US)
  Receive Date: 20150113
  Receipt Date: 20161220
  Transmission Date: 20170206
  Serious: Yes (Life-Threatening, Hospitalization, Other)
  Sender: FDA-Public Use
  Company Number: US-RANBAXY-2014US-91498

PATIENT
  Age: 18 Year
  Sex: Female

DRUGS (1)
  1. ACETAMINOPHEN. [Suspect]
     Active Substance: ACETAMINOPHEN
     Indication: MALAISE
     Dosage: UNK
     Route: 048

REACTIONS (8)
  - Coma hepatic [Recovering/Resolving]
  - Toxicity to various agents [Recovering/Resolving]
  - Sinus tachycardia [Recovering/Resolving]
  - Renal failure [Recovering/Resolving]
  - Stillbirth [Unknown]
  - Acute hepatic failure [Recovering/Resolving]
  - Liver transplant [Unknown]
  - Metabolic acidosis [Recovering/Resolving]
